FAERS Safety Report 4808166-6 (Version None)
Quarter: 2005Q4

REPORT INFORMATION
  Report Type: 
  Country: None (occurrence: None)
  Receive Date: 20051020
  Receipt Date: 20051006
  Transmission Date: 20060501
  Serious: Yes (Hospitalization, Other)
  Sender: FDA-Public Use
  Company Number: FRA-2002-006598

PATIENT
  Age: 30 Year
  Sex: Female
  Weight: 51 kg

DRUGS (2)
  1. MIRENA [Suspect]
     Indication: CONTRACEPTION
     Dosage: 20 ?G/DAY, CONT, INTRA-UTERINE
     Route: 015
     Dates: start: 20011130, end: 20030528
  2. MINESSE [Concomitant]

REACTIONS (10)
  - CERVIX DISORDER [None]
  - DEPRESSION [None]
  - DRUG EXPOSURE DURING PREGNANCY [None]
  - IUD MIGRATION [None]
  - PELVIC PAIN [None]
  - PREGNANCY WITH CONTRACEPTIVE DEVICE [None]
  - RENAL IMPAIRMENT [None]
  - THREATENED LABOUR [None]
  - UTERINE PERFORATION [None]
  - VARICOSE VEIN [None]
